FAERS Safety Report 5411706-X (Version None)
Quarter: 2007Q3

REPORT INFORMATION
  Report Type: 
  Country: None (occurrence: None)
  Receive Date: 20070810
  Receipt Date: 20070730
  Transmission Date: 20080115
  Serious: Yes (Hospitalization)
  Sender: FDA-Public Use
  Company Number: DE-GENENTECH-213754

PATIENT
  Sex: Male
  Weight: 89 kg

DRUGS (9)
  1. RITUXAN [Suspect]
     Indication: CHRONIC LYMPHOCYTIC LEUKAEMIA
     Dosage: 375 MG/M2, Q4W
     Route: 042
     Dates: start: 20050110
  2. CYCLOPHOSPHAMIDE [Suspect]
     Indication: CHRONIC LYMPHOCYTIC LEUKAEMIA
     Dosage: 250 MG/M2, Q4W
     Route: 042
     Dates: start: 20050111
  3. FLUDARABINE PHOSPHATE [Suspect]
     Indication: CHRONIC LYMPHOCYTIC LEUKAEMIA
     Dosage: 25 MG/M2, Q4W
     Route: 042
     Dates: start: 20050111
  4. LEVOTHYROXINE SODIUM [Concomitant]
     Indication: DRUG USE FOR UNKNOWN INDICATION
     Dosage: 100 UNK, QD
  5. CYNT [Concomitant]
     Indication: DRUG USE FOR UNKNOWN INDICATION
     Dosage: .4 UNK, QD
  6. BAYOTENSIN [Concomitant]
     Indication: DRUG USE FOR UNKNOWN INDICATION
  7. MCP [Concomitant]
     Indication: DRUG USE FOR UNKNOWN INDICATION
  8. NIVADIL [Concomitant]
     Indication: DRUG USE FOR UNKNOWN INDICATION
  9. COTRIM [Concomitant]
     Indication: DRUG USE FOR UNKNOWN INDICATION

REACTIONS (5)
  - EMPHYSEMA [None]
  - LEUKOPENIA [None]
  - LYMPHOMA [None]
  - PNEUMONIA [None]
  - SINUSITIS [None]
